FAERS Safety Report 5581851-7 (Version None)
Quarter: 2008Q1

REPORT INFORMATION
  Report Type: 
  Country: None (occurrence: None)
  Receive Date: 20080104
  Receipt Date: 20071226
  Transmission Date: 20080703
  Serious: Yes (Other)
  Sender: FDA-Public Use
  Company Number: US-PFIZER INC-2007108245

PATIENT
  Sex: Male

DRUGS (1)
  1. MEDROL [Suspect]
     Indication: INTERVERTEBRAL DISC PROTRUSION
     Dosage: DAILY DOSE:16MG

REACTIONS (3)
  - CATARACT [None]
  - HYPERTENSION [None]
  - INTRAOCULAR PRESSURE INCREASED [None]
